FAERS Safety Report 4532896-7 (Version None)
Quarter: 2004Q4

REPORT INFORMATION
  Report Type: 
  Country: None (occurrence: None)
  Receive Date: 20041206
  Receipt Date: 20041011
  Transmission Date: 20050328
  Serious: No
  Sender: FDA-Public Use
  Company Number: USA041080837

PATIENT
  Age: 57 Year
  Sex: Male

DRUGS (2)
  1. CYMBALTA [Suspect]
     Indication: DEPRESSION
     Dosage: 60 MG/D AT BEDTIME
     Dates: start: 20040922, end: 20040930
  2. ZOCOR (SIMVASTATIN RATIOPHARM) [Concomitant]

REACTIONS (1)
  - AMNESIA [None]
